FAERS Safety Report 16914812 (Version 1)
Quarter: 2019Q4

REPORT INFORMATION
  Report Type: Spontaneous
  Country: GB (occurrence: GB)
  Receive Date: 20191014
  Receipt Date: 20191014
  Transmission Date: 20200122
  Serious: Yes (Death, Hospitalization)
  Sender: FDA-Public Use
  Company Number: GB-MYLANLABS-2019M1094945

PATIENT
  Age: 95 Year
  Sex: Female
  Weight: 62 kg

DRUGS (12)
  1. DIGOXIN. [Concomitant]
     Active Substance: DIGOXIN
     Dosage: 62.5 MICROGRAM, QD
  2. WARFARIN [Interacting]
     Active Substance: WARFARIN
     Indication: CARDIAC FAILURE
     Dosage: ACCORDING TO INTERNATIONAL NORMALISED RATIO. WITHHELD ON 3-4 JUNE AND 6-7 JUNE BUT GIVEN ON 5 JUNE.
     Route: 048
     Dates: end: 20190605
  3. BISOPROLOL [Concomitant]
     Active Substance: BISOPROLOL
     Dosage: 10 MILLIGRAM, QD
  4. FUROSEMIDE. [Concomitant]
     Active Substance: FUROSEMIDE
     Dosage: MORNING.
  5. LISINOPRIL. [Concomitant]
     Active Substance: LISINOPRIL
     Dosage: 20 MILLIGRAM, QD
  6. CLARITHROMYCIN. [Suspect]
     Active Substance: CLARITHROMYCIN
     Indication: CELLULITIS
     Dosage: 1000 MILLIGRAM, QD
     Route: 048
     Dates: start: 20190605, end: 20190610
  7. EDOXABAN [Interacting]
     Active Substance: EDOXABAN TOSYLATE
     Indication: PRODUCT USED FOR UNKNOWN INDICATION
     Dosage: 30 MILLIGRAM, QD
     Route: 048
     Dates: start: 20190608, end: 20190610
  8. SIMVASTATIN. [Concomitant]
     Active Substance: SIMVASTATIN
     Dosage: AT NIGHT.
  9. COCODAMOL [Concomitant]
     Active Substance: ACETAMINOPHEN\CODEINE PHOSPHATE
     Dosage: 8/500 REGULARLY.
  10. DOXAZOSIN [Concomitant]
     Active Substance: DOXAZOSIN MESYLATE
     Dosage: 4 MILLIGRAM, QD
  11. SALBUTAMOL [Concomitant]
     Active Substance: ALBUTEROL
     Dosage: 6 DOSAGE FORM, QD (INHALER)
  12. FLUCLOXACILLIN [Concomitant]
     Active Substance: FLUCLOXACILLIN
     Indication: CELLULITIS
     Dosage: 2000 MILLIGRAM, QD
     Route: 048
     Dates: start: 20190603

REACTIONS (3)
  - Rectal haemorrhage [Fatal]
  - Drug monitoring procedure not performed [Unknown]
  - Drug interaction [Unknown]

NARRATIVE: CASE EVENT DATE: 20190610
